FAERS Safety Report 4824678-3 (Version None)
Quarter: 2005Q4

REPORT INFORMATION
  Report Type: 
  Country: None (occurrence: None)
  Receive Date: 20051110
  Receipt Date: 20051102
  Transmission Date: 20060501
  Serious: Yes (Hospitalization)
  Sender: FDA-Public Use
  Company Number: FR-AVENTIS-200513613FR

PATIENT
  Age: 77 Year
  Sex: Male

DRUGS (11)
  1. OFLOCET [Suspect]
     Route: 042
     Dates: start: 20050914, end: 20051005
  2. FLAGYL [Suspect]
     Route: 048
     Dates: start: 20050929, end: 20051005
  3. AUGMENTIN '125' [Suspect]
     Route: 042
     Dates: start: 20050914, end: 20050922
  4. HEPARIN ^CHOAY^ [Suspect]
     Route: 042
     Dates: start: 20050914, end: 20051003
  5. MOPRAL [Suspect]
     Route: 042
     Dates: start: 20050918, end: 20050929
  6. DIGOXIN [Suspect]
     Route: 048
     Dates: end: 20051001
  7. SECTRAL [Concomitant]
     Route: 048
  8. LOVENOX [Concomitant]
  9. ATARAX [Concomitant]
     Route: 048
  10. PROPOFAN                           /00765201/ [Concomitant]
  11. VASTAREL [Concomitant]

REACTIONS (2)
  - THROMBOCYTOPENIA [None]
  - VASCULAR PURPURA [None]
